FAERS Safety Report 3833154 (Version 2)
Quarter: 2015Q4

REPORT INFORMATION
  Report Type: Report from Study
  Country: US (occurrence: US)
  Receive Date: 20020903
  Receipt Date: 20151231
  Transmission Date: 20160305
  Serious: Yes (Other)
  Sender: FDA-Public Use
  Company Number: US-BRISTOL-MYERS SQUIBB COMPANY-12010252

PATIENT
  Age: 36 Year
  Sex: Female

DRUGS (4)
  1. NELFINAVIR [Suspect]
     Active Substance: NELFINAVIR
     Indication: ASYMPTOMATIC HIV INFECTION
     Dosage: 1250 MG, BID
     Route: 048
     Dates: start: 20020223
  2. STAVUDINE. [Suspect]
     Active Substance: STAVUDINE
     Indication: ASYMPTOMATIC HIV INFECTION
     Dosage: 60 MG, QD
     Route: 048
     Dates: start: 20020511
  3. COMBIVIR [Suspect]
     Active Substance: LAMIVUDINE\ZIDOVUDINE
     Indication: ASYMPTOMATIC HIV INFECTION
     Dosage: 1 DF, QD
     Route: 048
     Dates: start: 20020223, end: 20020510
  4. EPIVIR [Suspect]
     Active Substance: LAMIVUDINE
     Indication: ASYMPTOMATIC HIV INFECTION
     Dosage: 300 MG, QD
     Route: 048
     Dates: start: 20020511

REACTIONS (2)
  - Pregnancy [Recovered/Resolved]
  - Premature delivery [Unknown]

NARRATIVE: CASE EVENT DATE: 2001
